FAERS Safety Report 8059376-9 (Version None)
Quarter: 2012Q1

REPORT INFORMATION
  Report Type: 
  Country: None (occurrence: None)
  Receive Date: 20120120
  Receipt Date: 20120117
  Transmission Date: 20120608
  Serious: Yes (Death, Hospitalization)
  Sender: FDA-Public Use
  Company Number: US-CELGENEUS-163-21880-11123837

PATIENT
  Sex: Male
  Weight: 72.64 kg

DRUGS (10)
  1. VERAPAMIL [Concomitant]
     Route: 065
  2. BUMETANIDE [Concomitant]
     Route: 065
  3. METOPROLOL [Concomitant]
     Route: 065
  4. METAMUCIL-2 [Concomitant]
     Route: 065
  5. REVLIMID [Suspect]
     Indication: MULTIPLE MYELOMA
     Dosage: 20 MILLIGRAM
     Route: 048
     Dates: start: 20111206
  6. SPIRIVA [Concomitant]
     Route: 065
  7. DEXAMETHASONE TAB [Concomitant]
     Route: 065
  8. POTASSIUM CHLORIDE [Concomitant]
     Route: 065
  9. WARFARIN SODIUM [Concomitant]
     Route: 065
  10. SENOKOT [Concomitant]
     Route: 065

REACTIONS (3)
  - MULTIPLE MYELOMA [None]
  - ATRIAL FIBRILLATION [None]
  - PNEUMONIA [None]
